FAERS Safety Report 7681559-8 (Version None)
Quarter: 2011Q3

REPORT INFORMATION
  Report Type: 
  Country: None (occurrence: None)
  Receive Date: 20110812
  Receipt Date: 20110728
  Transmission Date: 20111222
  Serious: Yes (Other)
  Sender: FDA-Public Use
  Company Number: GB-ARROW GEN-2011-11666

PATIENT
  Age: 56 Year
  Sex: Female

DRUGS (5)
  1. FORTISIP [Concomitant]
     Indication: MEDICAL DIET
     Dosage: 1 DF, TID
     Route: 048
     Dates: start: 20110501
  2. DIAZEPAM [Concomitant]
     Indication: ANXIETY
     Dosage: 2 MG, TID
     Route: 048
     Dates: start: 20110501
  3. MIRTAZAPINE [Suspect]
     Indication: DEPRESSION
     Dosage: 30 MG, UNKNOWN
     Route: 048
     Dates: start: 20100201, end: 20110701
  4. LORATADINE [Concomitant]
     Indication: SEASONAL ALLERGY
     Dosage: 10 MG, UNKNOWN
     Route: 048
     Dates: start: 20110601, end: 20110601
  5. LANSOPRAZOLE [Concomitant]
     Indication: GASTRITIS
     Dosage: 20 MG, UNKNOWN
     Route: 048
     Dates: start: 20100101, end: 20110601

REACTIONS (4)
  - BASOPHIL COUNT DECREASED [None]
  - WHITE BLOOD CELL COUNT DECREASED [None]
  - NEUTROPHIL COUNT DECREASED [None]
  - MONOCYTE COUNT DECREASED [None]
